FAERS Safety Report 4413578-9 (Version None)
Quarter: 2004Q3

REPORT INFORMATION
  Report Type: 
  Country: None (occurrence: None)
  Receive Date: 20040729
  Receipt Date: 20040714
  Transmission Date: 20050211
  Serious: Yes (Life-Threatening)
  Sender: FDA-Public Use
  Company Number: ZANA001324

PATIENT
  Age: 27 Year
  Sex: Female

DRUGS (4)
  1. TIZANIDINE HCL [Suspect]
     Indication: MUSCLE CRAMP
     Dosage: 2 MG DAILY ORAL
     Route: 048
     Dates: start: 20040607
  2. ACETAMINOPHEN [Suspect]
     Indication: HEADACHE
     Dosage: 250 MG DAILY ORAL
     Route: 048
     Dates: start: 20040607
  3. MERCILON (DESOGESTREL) [Concomitant]
  4. BEKLOMETASONE DIPROPIONATE (BECLOMETASONE DIPROPIONATE) [Concomitant]

REACTIONS (2)
  - DYSPNOEA [None]
  - SENSATION OF FOREIGN BODY [None]
